FAERS Safety Report 7714594 (Version 3)
Quarter: 2017Q3

REPORT INFORMATION
  Report Type: Spontaneous
  Country: AU (occurrence: AU)
  Receive Date: 20101216
  Receipt Date: 20170718
  Transmission Date: 20171128
  Serious: Yes (Death)
  Sender: FDA-Public Use
  Company Number: AU-NAPPMUNDI-GBR-2010-0007491

PATIENT
  Age: 22 Year
  Sex: Male

DRUGS (7)
  1. NON-PMN THEOPHYLLINE [Suspect]
     Active Substance: THEOPHYLLINE ANHYDROUS
  2. DIAZEPAM. [Interacting]
     Active Substance: DIAZEPAM
  3. SERTRALINE [Interacting]
     Active Substance: SERTRALINE HYDROCHLORIDE
  4. METHADONE [Interacting]
     Active Substance: METHADONE HYDROCHLORIDE
  5. PARACETAMOL [Interacting]
     Active Substance: ACETAMINOPHEN
  6. CODEINE [Interacting]
     Active Substance: CODEINE
  7. NORDIAZEPAM [Interacting]
     Active Substance: NORDAZEPAM

REACTIONS (2)
  - Drug interaction [Fatal]
  - Cardio-respiratory arrest [Fatal]
